FAERS Safety Report 4478420-9 (Version None)
Quarter: 2004Q4

REPORT INFORMATION
  Report Type: 
  Country: None (occurrence: None)
  Receive Date: 20041018
  Receipt Date: 20041018
  Transmission Date: 20050328
  Serious: Yes (Life-Threatening)
  Sender: FDA-Public Use
  Company Number: None

PATIENT
  Age: 61 Year
  Sex: Male
  Weight: 72.576 kg

DRUGS (12)
  1. PROMETHAZINE [Suspect]
     Indication: NAUSEA
     Dosage: 12.5 MG Q6HPRN INTRAVENOUS
     Route: 042
     Dates: start: 20041010, end: 20041013
  2. PROMETHAZINE [Suspect]
     Indication: VOMITING
     Dosage: 12.5 MG Q6HPRN INTRAVENOUS
     Route: 042
     Dates: start: 20041010, end: 20041013
  3. NITROGLYC [Concomitant]
  4. SOD BICARB [Concomitant]
  5. TRANDATE [Concomitant]
  6. VASOTEC [Concomitant]
  7. MORPHINE [Concomitant]
  8. RESTORIL [Concomitant]
  9. CEFAZOLIN [Concomitant]
  10. ALTACE [Concomitant]
  11. MANNITOL [Concomitant]
  12. TPN [Concomitant]

REACTIONS (1)
  - WHITE BLOOD CELL COUNT DECREASED [None]
